FAERS Safety Report 13399434 (Version 1)
Quarter: 2017Q2

REPORT INFORMATION
  Report Type: Spontaneous
  Country: US (occurrence: US)
  Receive Date: 20170404
  Receipt Date: 20170404
  Transmission Date: 20170830
  Serious: Yes (Other)
  Sender: FDA-Public Use
  Company Number: US-BRISTOL-MYERS SQUIBB COMPANY-BMS-2017-028185

PATIENT
  Age: 65 Year
  Sex: Female

DRUGS (1)
  1. IPILIMUMAB [Suspect]
     Active Substance: IPILIMUMAB
     Indication: METASTATIC MALIGNANT MELANOMA
     Dosage: 3 MG/KG, Q3WK
     Route: 042
     Dates: start: 201410, end: 201412

REACTIONS (8)
  - Transaminases increased [Recovered/Resolved]
  - Pericardial drainage [Unknown]
  - Pleuropericarditis [Unknown]
  - Cardiac tamponade [Unknown]
  - Arthritis [Unknown]
  - Aspiration joint [Unknown]
  - Hyperthyroidism [Recovered/Resolved]
  - Rash pruritic [Unknown]
